FAERS Safety Report 4822536-1 (Version None)
Quarter: 2005Q4

REPORT INFORMATION
  Report Type: 
  Country: None (occurrence: None)
  Receive Date: 20051108
  Receipt Date: 20020925
  Transmission Date: 20060501
  Serious: Yes (Hospitalization)
  Sender: FDA-Public Use
  Company Number: NL-AVENTIS-200213101EU

PATIENT
  Sex: Female
  Weight: 38 kg

DRUGS (3)
  1. RILUZOLE [Suspect]
     Indication: HUNTINGTON'S CHOREA
     Dates: start: 20010108, end: 20020328
  2. PSYLLIUM SEEDS [Concomitant]
     Indication: CONSTIPATION
     Route: 048
     Dates: start: 20020101, end: 20020408
  3. ESOMEPRAZOLE [Concomitant]
     Indication: NAUSEA
     Route: 048
     Dates: start: 20020101, end: 20020101

REACTIONS (6)
  - CONSTIPATION [None]
  - DIARRHOEA [None]
  - ENTERITIS [None]
  - FATIGUE [None]
  - NAUSEA [None]
  - WEIGHT DECREASED [None]
